FAERS Safety Report 9067637 (Version 2)
Quarter: 2013Q2

REPORT INFORMATION
  Report Type: Spontaneous
  Country: FR (occurrence: FR)
  Receive Date: 20130206
  Receipt Date: 20130614
  Transmission Date: 20140414
  Serious: Yes (Other)
  Sender: FDA-Public Use
  Company Number: FR-PFIZER INC-2013043511

PATIENT
  Age: 62 Year
  Sex: Male

DRUGS (20)
  1. TAHOR [Suspect]
     Indication: PRODUCT USED FOR UNKNOWN INDICATION
     Dosage: UNK
     Route: 048
  2. SODIC HEPARIN PANPHARMA [Suspect]
     Dosage: UNK
     Route: 058
     Dates: end: 20121210
  3. CELLCEPT [Suspect]
     Indication: RENAL TRANSPLANT
     Dosage: UNK
     Dates: start: 201211, end: 20121211
  4. ADVAGRAF [Suspect]
     Indication: RENAL TRANSPLANT
     Dosage: UNK
     Route: 048
     Dates: start: 201211
  5. BACTRIM [Suspect]
     Indication: PRODUCT USED FOR UNKNOWN INDICATION
     Dosage: UNK
     Dates: start: 201211, end: 20121211
  6. NOVORAPID [Suspect]
     Indication: PRODUCT USED FOR UNKNOWN INDICATION
     Dosage: UNK
     Route: 058
  7. BETAHISTINE EG [Suspect]
     Indication: PRODUCT USED FOR UNKNOWN INDICATION
     Dosage: UNK
     Route: 048
     Dates: end: 20121215
  8. INEXIUM [Suspect]
     Indication: PRODUCT USED FOR UNKNOWN INDICATION
     Dosage: UNK
     Route: 048
     Dates: start: 201211, end: 20121215
  9. SERESTA [Suspect]
     Indication: PRODUCT USED FOR UNKNOWN INDICATION
     Dosage: UNK
     Route: 048
  10. CORTANCYL [Suspect]
     Indication: PRODUCT USED FOR UNKNOWN INDICATION
     Dosage: UNK
     Route: 048
     Dates: start: 201211
  11. ZYLORIC [Suspect]
     Dosage: UNK
     Route: 048
     Dates: start: 201211, end: 20121217
  12. ARANESP [Concomitant]
     Dosage: UNK
  13. SODIUM BICARBONATE [Concomitant]
     Dosage: UNK
  14. BISOCE [Concomitant]
     Dosage: UNK
  15. CALCIDOSE [Concomitant]
     Dosage: UNK
  16. KAYEXALATE [Concomitant]
     Dosage: UNK
  17. LEDERFOLIN [Concomitant]
     Dosage: UNK
  18. ACUPAN [Concomitant]
     Dosage: UNK
     Dates: start: 20121212
  19. ZYMAD [Concomitant]
     Dosage: EVERY 2 MONTHS
  20. CONTRAMAL [Concomitant]
     Dosage: UNK
     Dates: start: 20121211

REACTIONS (1)
  - Thrombocytopenia [Recovered/Resolved]
